FAERS Safety Report 12993411 (Version 3)
Quarter: 2016Q4

REPORT INFORMATION
  Report Type: Report from Study
  Country: CA (occurrence: CA)
  Receive Date: 20161202
  Receipt Date: 20161230
  Transmission Date: 20170207
  Serious: Yes (Other)
  Sender: FDA-Public Use
  Company Number: CA-ROCHE-1469244

PATIENT
  Age: 56 Year
  Sex: Female
  Weight: 68 kg

DRUGS (22)
  1. TYLENOL [Concomitant]
     Active Substance: ACETAMINOPHEN
     Route: 048
     Dates: start: 20140918
  2. PERCOCET [Concomitant]
     Active Substance: ACETAMINOPHEN\OXYCODONE HYDROCHLORIDE
     Indication: NEURALGIA
     Dosage: AS REQUIRED
     Route: 065
  3. RESTASIS [Concomitant]
     Active Substance: CYCLOSPORINE
  4. ZOPLICONE [Concomitant]
     Active Substance: ZOPICLONE
  5. TOPIRAMATE. [Concomitant]
     Active Substance: TOPIRAMATE
  6. TYLENOL [Concomitant]
     Active Substance: ACETAMINOPHEN
     Route: 048
     Dates: start: 20140918
  7. METHOTREXATE. [Concomitant]
     Active Substance: METHOTREXATE
  8. ZOMIG [Concomitant]
     Active Substance: ZOLMITRIPTAN
     Indication: MIGRAINE
  9. CELEBREX [Concomitant]
     Active Substance: CELECOXIB
  10. CONSTELLA [Suspect]
     Active Substance: LINACLOTIDE
     Indication: IRRITABLE BOWEL SYNDROME
     Route: 065
     Dates: start: 20150905
  11. BENADRYL [Concomitant]
     Active Substance: DIPHENHYDRAMINE HYDROCHLORIDE
  12. PAXIL (CANADA) [Concomitant]
  13. PENLAC [Concomitant]
     Active Substance: CICLOPIROX
     Indication: FUNGAL INFECTION
     Dosage: 8%
     Route: 065
  14. CLONAZEPAM. [Concomitant]
     Active Substance: CLONAZEPAM
     Indication: ANXIETY
     Dosage: STARTED PRIOR TO 2013
     Route: 065
  15. SOLU-MEDROL [Concomitant]
     Active Substance: METHYLPREDNISOLONE SODIUM SUCCINATE
     Route: 042
     Dates: start: 20140918
  16. MELOXICAM. [Concomitant]
     Active Substance: MELOXICAM
  17. RITUXAN [Suspect]
     Active Substance: RITUXIMAB
     Indication: RHEUMATOID ARTHRITIS
     Dosage: DAY 1 AND 15. LAST DOSE ON 22/DEC/2015
     Route: 042
     Dates: start: 20140918
  18. FLONASE [Concomitant]
     Active Substance: FLUTICASONE PROPIONATE
  19. BENADRYL [Concomitant]
     Active Substance: DIPHENHYDRAMINE HYDROCHLORIDE
     Route: 048
     Dates: start: 20140918
  20. BETADERM (CANADA) [Concomitant]
  21. NEXIUM [Concomitant]
     Active Substance: ESOMEPRAZOLE MAGNESIUM
     Indication: DYSPEPSIA
  22. REACTINE (CANADA) [Concomitant]
     Active Substance: CETIRIZINE HYDROCHLORIDE

REACTIONS (10)
  - Diarrhoea [Unknown]
  - Infusion related reaction [Recovered/Resolved]
  - Joint swelling [Unknown]
  - Sleep apnoea syndrome [Not Recovered/Not Resolved]
  - Arthralgia [Unknown]
  - Urticaria [Unknown]
  - Insomnia [Unknown]
  - Weight increased [Unknown]
  - Dysphagia [Unknown]
  - Migraine [Not Recovered/Not Resolved]

NARRATIVE: CASE EVENT DATE: 20141001
